FAERS Safety Report 17989685 (Version 2)
Quarter: 2020Q3

REPORT INFORMATION
  Report Type: Spontaneous
  Country: JP (occurrence: JP)
  Receive Date: 20200707
  Receipt Date: 20200715
  Transmission Date: 20201103
  Serious: Yes (Death, Other)
  Sender: FDA-Public Use
  Company Number: JP-JNJFOC-20200639637

PATIENT
  Age: 73 Year
  Sex: Female

DRUGS (5)
  1. AMLODIN [Suspect]
     Active Substance: AMLODIPINE BESYLATE
     Indication: PRODUCT USED FOR UNKNOWN INDICATION
     Route: 048
  2. XEPLION [Suspect]
     Active Substance: PALIPERIDONE PALMITATE
     Indication: SCHIZOPHRENIA
     Dosage: PALIPERIDONE PALMITATE: 25 MG
     Route: 030
     Dates: start: 20150610, end: 20200610
  3. XEPLION [Suspect]
     Active Substance: PALIPERIDONE PALMITATE
  4. XEPLION [Suspect]
     Active Substance: PALIPERIDONE PALMITATE
  5. ALOSITOL [Suspect]
     Active Substance: ALLOPURINOL
     Indication: PRODUCT USED FOR UNKNOWN INDICATION
     Route: 048

REACTIONS (10)
  - Drowning [Fatal]
  - Oesophageal carcinoma [Unknown]
  - Cerebral atrophy [Unknown]
  - Hyperlipidaemia [Unknown]
  - Back pain [Unknown]
  - Head injury [Fatal]
  - Pyelonephritis [Unknown]
  - Cognitive disorder [Unknown]
  - Gait disturbance [Unknown]
  - Fall [Fatal]

NARRATIVE: CASE EVENT DATE: 201804
